FAERS Safety Report 6403074-1 (Version None)
Quarter: 2009Q4

REPORT INFORMATION
  Report Type: 
  Country: None (occurrence: None)
  Receive Date: 20091016
  Receipt Date: 20090915
  Transmission Date: 20100525
  Serious: No
  Sender: FDA-Public Use
  Company Number: US-BAYER-200933086NA

PATIENT
  Sex: Male

DRUGS (2)
  1. CIPRO [Suspect]
     Indication: PROSTATIC DISORDER
  2. BETAPACE AF [Concomitant]
     Dates: start: 19990101

REACTIONS (1)
  - PALPITATIONS [None]
